FAERS Safety Report 6379355-7 (Version None)
Quarter: 2009Q3

REPORT INFORMATION
  Report Type: 
  Country: None (occurrence: None)
  Receive Date: 20090923
  Receipt Date: 20090923
  Transmission Date: 20100115
  Serious: No
  Sender: FDA-Public Use
  Company Number: None

PATIENT
  Age: 23 Year
  Sex: Female

DRUGS (1)
  1. INSULIN ASPART [Suspect]
     Indication: HYPERGLYCAEMIA
     Dosage: 10 UNITS IV X 1
     Dates: start: 20081111

REACTIONS (8)
  - BLOOD GLUCOSE DECREASED [None]
  - BLOOD GLUCOSE INCREASED [None]
  - COLD SWEAT [None]
  - HYPERHIDROSIS [None]
  - HYPOPHAGIA [None]
  - NAUSEA [None]
  - URINE KETONE BODY PRESENT [None]
  - VOMITING [None]
